FAERS Safety Report 6833359-6 (Version None)
Quarter: 2010Q3

REPORT INFORMATION
  Report Type: 
  Country: None (occurrence: None)
  Receive Date: 20100712
  Receipt Date: 20070322
  Transmission Date: 20110219
  Serious: No
  Sender: FDA-Public Use
  Company Number: US-PFIZER INC-2007025025

PATIENT
  Sex: Female
  Weight: 49.9 kg

DRUGS (9)
  1. CHANTIX [Suspect]
     Indication: SMOKING CESSATION THERAPY
     Dates: start: 20070316
  2. STRATTERA [Concomitant]
  3. CELEBREX [Concomitant]
  4. COREG [Concomitant]
  5. LORAZEPAM [Concomitant]
  6. HYDROCODONE BITARTRATE [Concomitant]
     Indication: PAIN
  7. DEPAKOTE [Concomitant]
  8. ABILIFY [Concomitant]
  9. ATIVAN [Concomitant]

REACTIONS (2)
  - ABDOMINAL DISTENSION [None]
  - MICTURITION URGENCY [None]
